FAERS Safety Report 4263866-4 (Version None)
Quarter: 2004Q1

REPORT INFORMATION
  Report Type: 
  Country: None (occurrence: None)
  Receive Date: 20040106
  Receipt Date: 20031216
  Transmission Date: 20041129
  Serious: Yes (Disabling)
  Sender: FDA-Public Use
  Company Number: PHBS2003CA14228

PATIENT
  Age: 52 Year
  Sex: Female

DRUGS (7)
  1. ZELNORM [Suspect]
     Indication: CONSTIPATION
     Dosage: 6 MG, BID
     Route: 048
     Dates: start: 20030926, end: 20031006
  2. SERC [Concomitant]
     Route: 065
  3. DYAZIDE [Concomitant]
     Route: 065
  4. ESTRACE [Concomitant]
     Route: 065
  5. PROMETRIUM [Concomitant]
     Route: 065
  6. LOSEC I.V. [Concomitant]
     Route: 065
  7. VIOXX [Concomitant]
     Dosage: UNK, QD
     Route: 065

REACTIONS (6)
  - BALANCE DISORDER [None]
  - CONDITION AGGRAVATED [None]
  - DIZZINESS [None]
  - MENIERE'S DISEASE [None]
  - NAUSEA [None]
  - UPPER RESPIRATORY TRACT INFECTION [None]
